FAERS Safety Report 8047018-8 (Version None)
Quarter: 2012Q1

REPORT INFORMATION
  Report Type: 
  Country: None (occurrence: None)
  Receive Date: 20120116
  Receipt Date: 20111202
  Transmission Date: 20120608
  Serious: No
  Sender: FDA-Public Use
  Company Number: US-MYLANLABS-2011S1025160

PATIENT
  Sex: Male

DRUGS (1)
  1. TAMSULOSIN HCL [Suspect]

REACTIONS (10)
  - CONSTIPATION [None]
  - CHEST PAIN [None]
  - DEHYDRATION [None]
  - PARAESTHESIA [None]
  - NASAL DRYNESS [None]
  - DRY MOUTH [None]
  - POLLAKIURIA [None]
  - PAIN IN EXTREMITY [None]
  - HYPOAESTHESIA [None]
  - THIRST [None]
